FAERS Safety Report 19474217 (Version 5)
Quarter: 2021Q3

REPORT INFORMATION
  Report Type: Report from Study
  Country: None (occurrence: PT)
  Receive Date: 20210630
  Receipt Date: 20210714
  Transmission Date: 20211014
  Serious: Yes (Death, Hospitalization, Other)
  Sender: FDA-Public Use
  Company Number: PT-ABBVIE-21K-130-3969257-00

PATIENT
  Age: 80 Year
  Sex: Female

DRUGS (4)
  1. EUTIROX [Concomitant]
     Active Substance: LEVOTHYROXINE SODIUM
     Indication: HYPOTHYROIDISM
     Route: 048
  2. DUODOPA [Suspect]
     Active Substance: CARBIDOPA\LEVODOPA
     Indication: PARKINSON^S DISEASE
     Dosage: 20 MG + 5 MG
     Route: 050
     Dates: start: 2010
  3. DUODOPA [Suspect]
     Active Substance: CARBIDOPA\LEVODOPA
     Dosage: 20 MG + 5 MG?MORN:7.5CC;MAINT:1.3CC/H;EXTRA:4.5CC;LL1
     Route: 050
     Dates: start: 20210629, end: 20210702
  4. DUODOPA [Suspect]
     Active Substance: CARBIDOPA\LEVODOPA
     Dosage: 20 MG + 5 MG?MORN:7.5ML;MAINT:1.3ML/H;EXTRA:4.5ML;LL1
     Route: 050
     Dates: end: 20210621

REACTIONS (20)
  - Wound dehiscence [Recovered/Resolved]
  - Bacillus infection [Unknown]
  - Speech disorder [Not Recovered/Not Resolved]
  - Death [Fatal]
  - Gastrointestinal necrosis [Unknown]
  - Intestinal ischaemia [Unknown]
  - Purulent discharge [Unknown]
  - Septic shock [Not Recovered/Not Resolved]
  - Klebsiella infection [Unknown]
  - Musculoskeletal stiffness [Not Recovered/Not Resolved]
  - Abdominal distension [Not Recovered/Not Resolved]
  - Drainage [Unknown]
  - Sepsis [Not Recovered/Not Resolved]
  - Gastrointestinal scarring [Unknown]
  - On and off phenomenon [Not Recovered/Not Resolved]
  - Escherichia infection [Unknown]
  - Syncope [Recovered/Resolved]
  - Abdominal wound dehiscence [Recovered/Resolved]
  - Stoma site discharge [Unknown]
  - Dysbiosis [Unknown]

NARRATIVE: CASE EVENT DATE: 2021
